FAERS Safety Report 6333392-7 (Version None)
Quarter: 2009Q3

REPORT INFORMATION
  Report Type: 
  Country: None (occurrence: None)
  Receive Date: 20090828
  Receipt Date: 20090817
  Transmission Date: 20100115
  Serious: No
  Sender: FDA-Public Use
  Company Number: DE-ELI_LILLY_AND_COMPANY-DE200908003403

PATIENT
  Age: 30 Year
  Sex: Male

DRUGS (3)
  1. ZYPREXA [Suspect]
     Dosage: UNK, UNK
     Route: 048
  2. FLUANXOL [Concomitant]
  3. TAXILAN [Concomitant]

REACTIONS (1)
  - LEUKOPENIA [None]
